FAERS Safety Report 4673873-5 (Version None)
Quarter: 2005Q2

REPORT INFORMATION
  Report Type: 
  Country: None (occurrence: None)
  Receive Date: 20050525
  Receipt Date: 20050510
  Transmission Date: 20051028
  Serious: Yes (Hospitalization)
  Sender: FDA-Public Use
  Company Number: CM-MERCK-0505USA01246

PATIENT
  Age: 23 Year
  Sex: Female

DRUGS (2)
  1. STROMECTOL [Suspect]
     Route: 048
     Dates: start: 20050502, end: 20050502
  2. STROMECTOL [Suspect]
     Route: 048
     Dates: start: 19980101, end: 19980101

REACTIONS (4)
  - APHASIA [None]
  - COMA [None]
  - HEADACHE [None]
  - PYREXIA [None]
